FAERS Safety Report 8027673-9 (Version None)
Quarter: 2011Q4

REPORT INFORMATION
  Report Type: 
  Country: None (occurrence: None)
  Receive Date: 20111130
  Receipt Date: 20110518
  Transmission Date: 20120403
  Serious: Yes (Hospitalization, Other)
  Sender: FDA-Public Use
  Company Number: US201005000640

PATIENT
  Age: 69 Year
  Sex: Male
  Weight: 113.4 kg

DRUGS (23)
  1. GENTAMICIN [Concomitant]
  2. AMOXICILLIN [Concomitant]
  3. LISINOPRIL [Concomitant]
  4. HYDROCHLOROTHIAZIDE [Concomitant]
  5. DIOVAN [Concomitant]
  6. BYETTA [Suspect]
     Dates: start: 20060105, end: 20080513
  7. LANTUS (INSULIN GARGINE) [Concomitant]
  8. SIMVASTATIN [Concomitant]
  9. GABAPENTIN [Concomitant]
  10. JANUVIA [Concomitant]
  11. NORVASC [Concomitant]
  12. KLOR-CON [Concomitant]
  13. ACTOS [Concomitant]
  14. FELODIPINE [Concomitant]
  15. ZOCOR [Concomitant]
  16. LABETALOL HCL [Concomitant]
  17. ASPIRIN [Concomitant]
  18. EXENATIDE UNK STRENGTH PEN, DISPOSABLE DEVICE (EXENATIDE PEN (UNKNOWN [Concomitant]
  19. AMPICILLIN [Concomitant]
  20. PREVACID [Concomitant]
  21. METOPROLOL TARTRATE [Concomitant]
  22. ACETAMINOPHEN [Concomitant]
  23. NEURONTIN [Concomitant]

REACTIONS (4)
  - RENAL FAILURE ACUTE [None]
  - RENAL IMPAIRMENT [None]
  - PANCREATITIS [None]
  - OFF LABEL USE [None]
